FAERS Safety Report 17941885 (Version 1)
Quarter: 2020Q2

REPORT INFORMATION
  Report Type: Spontaneous
  Country: US (occurrence: US)
  Receive Date: 20200625
  Receipt Date: 20200625
  Transmission Date: 20200714
  Serious: No
  Sender: FDA-Public Use
  Company Number: US-SA-2020SA161158

PATIENT

DRUGS (5)
  1. TIROSINT [Concomitant]
     Active Substance: LEVOTHYROXINE SODIUM
  2. DUPIXENT [Suspect]
     Active Substance: DUPILUMAB
     Indication: DERMATITIS
     Dosage: 300 MG, QOW
     Route: 058
     Dates: start: 20200515
  3. DESLORATADIN [Concomitant]
     Active Substance: DESLORATADINE
  4. TACROLIMUS. [Concomitant]
     Active Substance: TACROLIMUS
  5. AZELASTINE. [Concomitant]
     Active Substance: AZELASTINE HYDROCHLORIDE

REACTIONS (2)
  - Dermatitis [Not Recovered/Not Resolved]
  - Product dose omission [Unknown]
